FAERS Safety Report 6790693-6 (Version None)
Quarter: 2010Q2

REPORT INFORMATION
  Report Type: 
  Country: None (occurrence: None)
  Receive Date: 20100624
  Receipt Date: 20100607
  Transmission Date: 20101027
  Serious: Yes (Other)
  Sender: FDA-Public Use
  Company Number: CA-PFIZER INC-2010057961

PATIENT
  Age: 20 Year
  Sex: Male

DRUGS (3)
  1. DILANTIN [Suspect]
     Indication: GRAND MAL CONVULSION
     Dosage: 300 MG, AT BEDTIME
     Dates: start: 20100423
  2. DIVALPROEX SODIUM [Concomitant]
     Dosage: 250 MG, 3X/DAY
  3. TRAZODONE [Concomitant]
     Dosage: UNK

REACTIONS (2)
  - AMNESIA [None]
  - GRAND MAL CONVULSION [None]
